FAERS Safety Report 16990117 (Version 4)
Quarter: 2020Q1

REPORT INFORMATION
  Report Type: Spontaneous
  Country: US (occurrence: US)
  Receive Date: 20191104
  Receipt Date: 20200323
  Transmission Date: 20200409
  Serious: Yes (Other)
  Sender: FDA-Public Use
  Company Number: US-VIFOR (INTERNATIONAL) INC.-VIT-2019-11560

PATIENT
  Age: 31 Year
  Sex: Female
  Weight: 116 kg

DRUGS (13)
  1. VENOFER [Suspect]
     Active Substance: IRON SUCROSE
     Route: 040
     Dates: start: 20191009
  2. VENOFER [Suspect]
     Active Substance: IRON SUCROSE
     Route: 040
     Dates: start: 20191023
  3. MIRCERA [Suspect]
     Active Substance: METHOXY POLYETHYLENE GLYCOL-EPOETIN BETA
     Indication: NEPHROGENIC ANAEMIA
     Route: 040
     Dates: start: 20191018, end: 20191018
  4. RETACRIT [Concomitant]
     Active Substance: EPOETIN ALFA-EPBX
     Dates: start: 201910
  5. VENOFER [Suspect]
     Active Substance: IRON SUCROSE
     Route: 040
     Dates: start: 20191025
  6. MIRCERA [Suspect]
     Active Substance: METHOXY POLYETHYLENE GLYCOL-EPOETIN BETA
     Indication: BLOOD ERYTHROPOIETIN DECREASED
  7. VENOFER [Suspect]
     Active Substance: IRON SUCROSE
     Route: 040
     Dates: start: 20191018
  8. VENOFER [Suspect]
     Active Substance: IRON SUCROSE
     Route: 040
     Dates: start: 20191014
  9. VENOFER [Suspect]
     Active Substance: IRON SUCROSE
     Route: 040
     Dates: start: 20191021
  10. HEPARIN [Concomitant]
     Active Substance: HEPARIN SODIUM
     Indication: END STAGE RENAL DISEASE
     Route: 040
     Dates: start: 20191004
  11. VENOFER [Suspect]
     Active Substance: IRON SUCROSE
     Indication: IRON DEFICIENCY ANAEMIA
     Route: 040
     Dates: start: 20191007
  12. VENOFER [Suspect]
     Active Substance: IRON SUCROSE
     Route: 040
     Dates: start: 20191017
  13. CALCITRIOL. [Concomitant]
     Active Substance: CALCITRIOL
     Indication: HYPERPARATHYROIDISM SECONDARY
     Route: 048
     Dates: start: 20191007

REACTIONS (6)
  - Flushing [Recovered/Resolved]
  - Feeling hot [Recovered/Resolved]
  - Drug hypersensitivity [Recovered/Resolved]
  - Throat tightness [Recovered/Resolved]
  - Respiratory distress [Recovered/Resolved]
  - Dyspnoea [Recovered/Resolved]

NARRATIVE: CASE EVENT DATE: 20191018
